FAERS Safety Report 6563931-2 (Version None)
Quarter: 2010Q1

REPORT INFORMATION
  Report Type: 
  Country: None (occurrence: None)
  Receive Date: 20100131
  Receipt Date: 20100120
  Transmission Date: 20100710
  Serious: Yes (Other)
  Sender: FDA-Public Use
  Company Number: US-JNJFOC-20100109702

PATIENT
  Sex: Female

DRUGS (2)
  1. TYLENOL-500 [Suspect]
     Indication: DRUG USE FOR UNKNOWN INDICATION
  2. TYLENOL-500 [Suspect]

REACTIONS (4)
  - ABDOMINAL PAIN UPPER [None]
  - HAEMATEMESIS [None]
  - PRODUCT QUALITY ISSUE [None]
  - VOMITING [None]
